FAERS Safety Report 8924648 (Version 12)
Quarter: 2014Q2

REPORT INFORMATION
  Report Type: Report from Study
  Country: US (occurrence: US)
  Receive Date: 20121126
  Receipt Date: 20140618
  Transmission Date: 20141212
  Serious: Yes (Death, Hospitalization, Other)
  Sender: FDA-Public Use
  Company Number: US-EISAI INC-E7272-00133-CLI-US

PATIENT
  Age: 62 Year
  Sex: Female

DRUGS (17)
  1. ONTAK [Suspect]
     Indication: MALIGNANT MELANOMA
     Dosage: 12 MCG/KG
     Route: 041
     Dates: start: 20121030, end: 20121102
  2. OXYCONTIN [Concomitant]
     Indication: PAIN
     Dosage: UNKNOWN
     Route: 048
     Dates: start: 201209
  3. OXYCODONE [Concomitant]
     Indication: PAIN
     Dosage: UNKNOWN
     Route: 048
     Dates: start: 201209
  4. OMEPRAZOLE [Concomitant]
     Indication: GASTROOESOPHAGEAL REFLUX DISEASE
     Dosage: UNKNOWN
     Route: 048
     Dates: start: 2012
  5. LUNESTA [Concomitant]
     Indication: INSOMNIA
     Dosage: UNKNOWN
     Route: 048
     Dates: start: 2007
  6. COLACE [Concomitant]
     Indication: CONSTIPATION
     Dosage: UNKNOWN
     Route: 048
     Dates: start: 201209
  7. XANAX [Concomitant]
     Indication: ANXIETY
     Dosage: UNKNOWN
     Route: 048
     Dates: start: 2012
  8. MAGNESIUM [Concomitant]
     Indication: HYPOMAGNESAEMIA
     Dosage: UNKNOWN
     Route: 048
     Dates: start: 20121030
  9. ALOXI [Concomitant]
     Indication: NAUSEA
     Dosage: UNKNOWN
     Route: 042
     Dates: start: 20121031
  10. ATIVAN [Concomitant]
     Indication: NAUSEA
     Dosage: UNKNOWN
     Route: 042
     Dates: start: 20121031
  11. NYSTATIN [Concomitant]
     Indication: ORAL CANDIDIASIS
     Dosage: UNKNOWN
     Route: 048
     Dates: start: 20121103
  12. ALBUMIN [Concomitant]
     Indication: HYPOALBUMINAEMIA
     Dosage: UNKNOWN
     Route: 048
     Dates: start: 20121103, end: 201211
  13. REMERON [Concomitant]
     Indication: DECREASED APPETITE
     Dosage: UNKNOWN
     Route: 048
     Dates: start: 20121103, end: 20121103
  14. SEROQUEL [Concomitant]
     Indication: DEPRESSION
     Dosage: UNKNOWN
     Route: 048
     Dates: start: 20121103, end: 20121103
  15. MARINOL [Concomitant]
     Indication: DECREASED APPETITE
     Dosage: UNKNOWN
     Route: 048
     Dates: start: 20121103, end: 20121103
  16. LACTATE IV FLUIDS [Concomitant]
     Indication: METABOLIC ACIDOSIS
     Dosage: UNKNOWN
     Route: 041
     Dates: start: 20121103, end: 20121108
  17. SALINE [Concomitant]
     Indication: DEHYDRATION
     Dosage: 1 LITER
     Route: 042
     Dates: start: 20121031

REACTIONS (4)
  - Generalised oedema [Recovered/Resolved]
  - Acute respiratory failure [Fatal]
  - Pleural effusion [Recovered/Resolved]
  - Dyspnoea [Recovered/Resolved with Sequelae]
